FAERS Safety Report 9022252 (Version 2)
Quarter: 2013Q1

REPORT INFORMATION
  Report Type: Spontaneous
  Country: IT (occurrence: IT)
  Receive Date: 20130118
  Receipt Date: 20130122
  Transmission Date: 20140127
  Serious: Yes (Death, Other)
  Sender: FDA-Public Use
  Company Number: PHHY2013IT004165

PATIENT
  Sex: Female

DRUGS (4)
  1. ZOMETA [Suspect]
     Indication: PLASMA CELL MYELOMA
     Dosage: 4 MG, MONTHLY
     Route: 042
     Dates: start: 20030101, end: 20050901
  2. AREDIA [Suspect]
     Indication: PLASMA CELL MYELOMA
     Dosage: 90 MG, MONTHLY
     Route: 042
     Dates: start: 19960601, end: 19970101
  3. AREDIA [Suspect]
     Dosage: 90 MG, MONTHLY
     Dates: start: 199901, end: 199907
  4. AREDIA [Suspect]
     Dosage: 90 MG, MONTHLY
     Dates: start: 200001, end: 200007

REACTIONS (2)
  - Death [Fatal]
  - Osteonecrosis of jaw [Unknown]
